FAERS Safety Report 9032666 (Version 2)
Quarter: 2013Q1

REPORT INFORMATION
  Report Type: Spontaneous
  Country: US (occurrence: US)
  Receive Date: 20130126
  Receipt Date: 20130308
  Transmission Date: 20140127
  Serious: Yes (Disabling)
  Sender: FDA-Public Use
  Company Number: US-US-EMD SERONO, INC.-7152563

PATIENT
  Sex: Female

DRUGS (3)
  1. REBIF [Suspect]
     Indication: MULTIPLE SCLEROSIS
     Dates: start: 20120709
  2. REBIF [Suspect]
     Route: 058
     Dates: end: 20120728
  3. REBIF [Suspect]
     Dates: end: 20121010

REACTIONS (1)
  - Muscle tightness [Recovered/Resolved]
